FAERS Safety Report 7405036-4 (Version None)
Quarter: 2011Q2

REPORT INFORMATION
  Report Type: 
  Country: None (occurrence: None)
  Receive Date: 20110404
  Receipt Date: 20110325
  Transmission Date: 20111010
  Serious: Yes (Other)
  Sender: FDA-Public Use
  Company Number: 1000019560

PATIENT
  Age: 57 Year
  Sex: Female

DRUGS (3)
  1. ARMOUR THYROID(THYROID)(30 MILLIGRAM, TABLETS) 30 MG [Suspect]
     Indication: HYPOTHYROIDISM
     Dosage: (30 MG,  1 IN 1 D),ORAL
     Route: 048
     Dates: start: 20101201, end: 20110302
  2. VYTORIN (INEGY)(INEGY) [Concomitant]
  3. INSULIN (INSULIN) (INSULIN) [Concomitant]

REACTIONS (1)
  - BLOOD GLUCOSE DECREASED [None]
